FAERS Safety Report 8145173-2 (Version None)
Quarter: 2012Q1

REPORT INFORMATION
  Report Type: 
  Country: None (occurrence: None)
  Receive Date: 20120217
  Receipt Date: 20120214
  Transmission Date: 20120608
  Serious: Yes (Death)
  Sender: FDA-Public Use
  Company Number: PHHY2012BE012509

PATIENT
  Sex: Male

DRUGS (2)
  1. SANDOSTATIN LAR [Suspect]
     Dosage: UNK UKN, UNK
     Route: 030
     Dates: start: 20110922
  2. SANDOSTATIN LAR [Suspect]
     Dosage: UNK UKN, UNK
     Route: 030
     Dates: start: 20111102

REACTIONS (1)
  - DEATH [None]
